FAERS Safety Report 6766464-3 (Version None)
Quarter: 2010Q2

REPORT INFORMATION
  Report Type: 
  Country: None (occurrence: None)
  Receive Date: 20100611
  Receipt Date: 20100601
  Transmission Date: 20101027
  Serious: Yes (Disabling, Other)
  Sender: FDA-Public Use
  Company Number: US-PFIZER INC-2009260542

PATIENT
  Sex: Male
  Weight: 58.3 kg

DRUGS (10)
  1. SUTENT [Suspect]
     Indication: HEPATIC NEOPLASM MALIGNANT
     Dosage: 37.5 MG, 1X/DAY
     Route: 048
     Dates: start: 20090303, end: 20090311
  2. XELODA [Suspect]
     Indication: HEPATIC NEOPLASM MALIGNANT
     Dosage: 2000 MG, Q AM, 1500 MG, Q PM 2X/DAY
     Route: 048
     Dates: start: 20090303, end: 20090311
  3. ADVIL LIQUI-GELS [Concomitant]
     Dosage: UNK
     Dates: start: 20090304, end: 20090308
  4. ZOFRAN [Concomitant]
     Dosage: UNK
     Dates: start: 20090304, end: 20090311
  5. PROCHLORPERAZINE [Concomitant]
     Dosage: UNK
     Dates: start: 20090306
  6. REGLAN [Concomitant]
     Dosage: UNK
     Dates: start: 20090304, end: 20090311
  7. LORAZEPAM [Concomitant]
     Dosage: UNK
     Dates: start: 20090306, end: 20090308
  8. LOPERAMIDE [Concomitant]
     Dosage: UNK
     Dates: start: 20090308
  9. BENADRYL [Concomitant]
     Dosage: UNK
     Dates: start: 20090310
  10. COMPAZINE [Concomitant]
     Dosage: UNK
     Dates: start: 20090310

REACTIONS (1)
  - DEMYELINATION [None]
